FAERS Safety Report 6453655-4 (Version None)
Quarter: 2009Q4

REPORT INFORMATION
  Report Type: 
  Country: None (occurrence: None)
  Receive Date: 20091124
  Receipt Date: 20091112
  Transmission Date: 20100525
  Serious: Yes (Other)
  Sender: FDA-Public Use
  Company Number: PHEH2009US10527

PATIENT
  Sex: Female
  Weight: 116 kg

DRUGS (6)
  1. RECLAST [Suspect]
     Indication: OSTEOPOROSIS
     Dosage: 5 MG, UNK
     Route: 042
     Dates: start: 20080903
  2. RECLAST [Suspect]
     Dosage: 5 MG, UNK
     Dates: start: 20090101
  3. LASIX [Concomitant]
     Dosage: 20 MG, UNK
     Route: 048
  4. NEXIUM [Concomitant]
     Dosage: 40 MG, UNK
     Route: 048
  5. LEVOXYL [Concomitant]
     Dosage: 75 UG, UNK
     Route: 048
  6. POTASSIUM CHLORIDE [Concomitant]
     Dosage: 10 MEQ, UNK
     Route: 048

REACTIONS (4)
  - CHILLS [None]
  - DELIRIUM [None]
  - PYREXIA [None]
  - TREMOR [None]
